FAERS Safety Report 6946247-1 (Version None)
Quarter: 2010Q3

REPORT INFORMATION
  Report Type: 
  Country: None (occurrence: None)
  Receive Date: 20100824
  Receipt Date: 20100809
  Transmission Date: 20110219
  Serious: Yes (Hospitalization, Other)
  Sender: FDA-Public Use
  Company Number: DSJ-2010-13646

PATIENT
  Age: 51 Year
  Sex: Male

DRUGS (2)
  1. BENICAR HCT [Suspect]
     Indication: HYPERTENSION
     Dosage: 20/12.5 MG (1 IN 1 D), PER ORAL
     Route: 048
     Dates: start: 20060101, end: 20100630
  2. ROSUVASTATIN (ROSUVASTATIN) (ROSUVASTATIN) [Concomitant]

REACTIONS (3)
  - CALCULUS URINARY [None]
  - CONDITION AGGRAVATED [None]
  - POLYURIA [None]
